FAERS Safety Report 16973751 (Version 1)
Quarter: 2019Q4

REPORT INFORMATION
  Report Type: Spontaneous
  Country: US (occurrence: US)
  Receive Date: 20191030
  Receipt Date: 20191030
  Transmission Date: 20200122
  Serious: No
  Sender: FDA-Public Use
  Company Number: US-PFIZER INC-2019033678

PATIENT
  Age: 62 Year

DRUGS (2)
  1. VIAGRA [Suspect]
     Active Substance: SILDENAFIL CITRATE
     Dosage: UNK, AS NEEDED (1/2 TO ONE DAILY)
     Route: 048
  2. VIAGRA [Suspect]
     Active Substance: SILDENAFIL CITRATE
     Indication: ERECTILE DYSFUNCTION
     Dosage: 100 MG, AS NEEDED
     Route: 048

REACTIONS (1)
  - Hypertension [Unknown]
